FAERS Safety Report 5448107-4 (Version None)
Quarter: 2007Q3

REPORT INFORMATION
  Report Type: 
  Country: None (occurrence: None)
  Receive Date: 20070803
  Receipt Date: 20070725
  Transmission Date: 20080115
  Serious: Yes (Other)
  Sender: FDA-Public Use
  Company Number: 200711644BWH

PATIENT
  Age: 68 Year
  Sex: Male
  Weight: 72.5755 kg

DRUGS (5)
  1. NEXAVAR [Suspect]
     Indication: METASTATIC RENAL CELL CARCINOMA
     Dosage: 400 MG, BID, ORAL; 200 MG, BID, ORAL
     Route: 048
     Dates: start: 20070512
  2. NEXAVAR [Suspect]
     Indication: METASTATIC RENAL CELL CARCINOMA
     Dosage: 400 MG, BID, ORAL; 200 MG, BID, ORAL
     Route: 048
     Dates: start: 20070523
  3. TRAZODONE HCL [Concomitant]
  4. BUPROPION HCL [Concomitant]
  5. CLONAZEPAM [Concomitant]

REACTIONS (5)
  - DIARRHOEA HAEMORRHAGIC [None]
  - ERYTHEMA [None]
  - HICCUPS [None]
  - HYPERSOMNIA [None]
  - STOMACH DISCOMFORT [None]
